FAERS Safety Report 9700228 (Version 1)
Quarter: 2013Q4

REPORT INFORMATION
  Report Type: Spontaneous
  Country: SZ (occurrence: None)
  Receive Date: 20131119
  Receipt Date: 20131119
  Transmission Date: 20140711
  Serious: Yes (Life-Threatening, Hospitalization)
  Sender: FDA-Public Use
  Company Number: 2013P1020881

PATIENT
  Age: 63 Year
  Sex: Male

DRUGS (2)
  1. DIAZEPAM [Suspect]
     Dosage: 90 MG;X1;PO
     Route: 048
  2. ZOLPIDEM [Suspect]
     Dosage: 50 MG;X1;PO
     Route: 048

REACTIONS (5)
  - Atrial fibrillation [None]
  - Thrombocytopenia [None]
  - International normalised ratio increased [None]
  - Activated partial thromboplastin time prolonged [None]
  - Intentional overdose [None]
